FAERS Safety Report 9005513 (Version 1)
Quarter: 2013Q1

REPORT INFORMATION
  Report Type: Spontaneous
  Country: FR (occurrence: FR)
  Receive Date: 20130109
  Receipt Date: 20130109
  Transmission Date: 20140127
  Serious: Yes (Life-Threatening, Other)
  Sender: FDA-Public Use
  Company Number: FR-MERCK-2011SP051833

PATIENT
  Age: 69 Year
  Sex: Female

DRUGS (17)
  1. AERIUS [Suspect]
     Indication: PRODUCT USED FOR UNKNOWN INDICATION
     Dosage: 1 DF, QD
  2. SINGULAIR [Suspect]
     Indication: ASTHMA
     Dosage: 10 MG, QD
     Route: 048
  3. XOLAIR [Suspect]
     Indication: ASTHMA
     Dosage: 300 MG, QOW
     Route: 058
     Dates: start: 20080710, end: 200908
  4. XOLAIR [Suspect]
     Route: 058
     Dates: start: 200908, end: 201004
  5. XOLAIR [Suspect]
     Route: 058
     Dates: start: 201004, end: 20100805
  6. CORTANCYL [Suspect]
     Indication: ASTHMA
     Dosage: 20 MG, QD
     Route: 048
     Dates: start: 2006
  7. BRICANYL [Suspect]
     Indication: ASTHMA
     Dosage: 30 MG, QD
     Route: 055
     Dates: start: 2008
  8. ATROVENT [Suspect]
     Indication: ASTHMA
     Dosage: 0.5 MG, TID
     Route: 055
     Dates: start: 2008
  9. SYMBICORT TURBUHALER [Suspect]
     Indication: ASTHMA
     Dosage: 400 ?G, BID
     Route: 055
     Dates: start: 2010
  10. PROTELOS [Suspect]
     Indication: OSTEOPOROSIS
     Dosage: 1 DF, QD
     Route: 048
     Dates: start: 2010
  11. ALDACTONE TABLETS [Suspect]
     Indication: PRODUCT USED FOR UNKNOWN INDICATION
     Dosage: 25 MG, QD
  12. INIPOMP [Suspect]
     Indication: PRODUCT USED FOR UNKNOWN INDICATION
     Dosage: 40 MG, QD
  13. LIPANTHYL [Suspect]
     Indication: PRODUCT USED FOR UNKNOWN INDICATION
     Dosage: 1 DF, QD
  14. DEDROGYL [Suspect]
     Indication: PRODUCT USED FOR UNKNOWN INDICATION
     Dosage: 3 GTT, QD
  15. CACIT VITAMINE D3 [Suspect]
     Indication: PRODUCT USED FOR UNKNOWN INDICATION
     Dosage: 1 DF, QD
  16. URIDINE 5^-TRIPHOSPHATE [Suspect]
     Indication: PRODUCT USED FOR UNKNOWN INDICATION
  17. DAFALGAN [Suspect]
     Indication: PRODUCT USED FOR UNKNOWN INDICATION

REACTIONS (3)
  - Neoplasm malignant [Unknown]
  - Pancoast^s syndrome [Unknown]
  - Squamous cell carcinoma of lung [Unknown]
